FAERS Safety Report 19087209 (Version 1)
Quarter: 2021Q2

REPORT INFORMATION
  Report Type: Spontaneous
  Country: US (occurrence: US)
  Receive Date: 20210402
  Receipt Date: 20210402
  Transmission Date: 20210717
  Serious: Yes (Hospitalization)
  Sender: FDA-Public Use
  Company Number: US-BRAINTREE LABORATORIES, INC.-2021BTE00214

PATIENT
  Sex: Female

DRUGS (3)
  1. SUPREP BOWEL PREP [Suspect]
     Active Substance: MAGNESIUM SULFATE\POTASSIUM SULFATE\SODIUM SULFATE
     Dosage: 3 OZ EVERY 4 DAYS
     Route: 048
     Dates: start: 2021
  2. SUPREP BOWEL PREP [Suspect]
     Active Substance: MAGNESIUM SULFATE\POTASSIUM SULFATE\SODIUM SULFATE
     Indication: INTESTINAL OBSTRUCTION
     Dosage: 6 OZ, EVERY 7?10 DAYS OR AS NEEDED
     Route: 048
  3. SUPREP BOWEL PREP [Suspect]
     Active Substance: MAGNESIUM SULFATE\POTASSIUM SULFATE\SODIUM SULFATE
     Dosage: 6 OZ, EVERY 7?10 DAYS OR AS NEEDED

REACTIONS (5)
  - Asthenia [Not Recovered/Not Resolved]
  - Abdominal operation [Unknown]
  - Gastrointestinal obstruction [Recovered/Resolved]
  - Off label use [Not Recovered/Not Resolved]
  - Drug ineffective for unapproved indication [Recovered/Resolved]

NARRATIVE: CASE EVENT DATE: 202102
